FAERS Safety Report 10784966 (Version 1)
Quarter: 2015Q1

REPORT INFORMATION
  Report Type: Spontaneous
  Country: US (occurrence: US)
  Receive Date: 20150211
  Receipt Date: 20150211
  Transmission Date: 20150721
  Serious: No
  Sender: FDA-Public Use
  Company Number: US-GLAXOSMITHKLINE-A1074819A

PATIENT

DRUGS (1)
  1. LAMICTAL [Suspect]
     Active Substance: LAMOTRIGINE
     Indication: PRODUCT USED FOR UNKNOWN INDICATION
     Dosage: 100 MG INCREASED TO 150 MG ON 16 APRIL 2011
     Route: 065
     Dates: start: 20110114

REACTIONS (5)
  - Impaired driving ability [Unknown]
  - Dissociation [Unknown]
  - Feeling abnormal [Unknown]
  - Drug dose omission [Unknown]
  - Panic reaction [Unknown]
